FAERS Safety Report 18101101 (Version 4)
Quarter: 2025Q1

REPORT INFORMATION
  Report Type: Spontaneous
  Country: PT (occurrence: PT)
  Receive Date: 20200801
  Receipt Date: 20250224
  Transmission Date: 20250408
  Serious: Yes (Hospitalization, Other)
  Sender: AUROBINDO
  Company Number: PT-EMA-20110609-TKAURP-112843683

PATIENT
  Age: 53 Year
  Sex: Male

DRUGS (24)
  1. ACYCLOVIR [Suspect]
     Active Substance: ACYCLOVIR
     Indication: Product used for unknown indication
     Route: 065
  2. BISOPROLOL [Suspect]
     Active Substance: BISOPROLOL
     Indication: Product used for unknown indication
     Dosage: 5 MILLIGRAM, ONCE A DAY
     Route: 065
  3. ENALAPRIL [Suspect]
     Active Substance: ENALAPRIL
     Indication: Product used for unknown indication
     Dosage: 20 MILLIGRAM, ONCE A DAY
     Route: 065
  4. FLUDARABINE [Suspect]
     Active Substance: FLUDARABINE PHOSPHATE
     Indication: Stem cell transplant
     Route: 065
     Dates: start: 200512
  5. BUSULFAN [Suspect]
     Active Substance: BUSULFAN
     Indication: Stem cell transplant
     Route: 065
     Dates: start: 200512
  6. BUSULFAN [Suspect]
     Active Substance: BUSULFAN
     Indication: Bone marrow conditioning regimen
  7. CYCLOSPORINE [Suspect]
     Active Substance: CYCLOSPORINE
     Indication: Stem cell transplant
     Dosage: 50 MILLIGRAM, TWO TIMES A DAY (100 MILLIGRAM, ONCE A DAY)
     Route: 065
     Dates: start: 200512
  8. CYCLOSPORINE [Suspect]
     Active Substance: CYCLOSPORINE
     Indication: Prophylaxis against graft versus host disease
  9. CARBOPLATIN [Suspect]
     Active Substance: CARBOPLATIN
     Indication: Product used for unknown indication
     Route: 065
     Dates: start: 200512
  10. METHOTREXATE [Suspect]
     Active Substance: METHOTREXATE
     Indication: Stem cell transplant
     Route: 065
     Dates: start: 200512
  11. METHOTREXATE [Suspect]
     Active Substance: METHOTREXATE
     Indication: Prophylaxis against graft versus host disease
  12. METHYLPREDNISOLONE [Suspect]
     Active Substance: METHYLPREDNISOLONE
     Indication: Glomerulonephritis minimal lesion
     Dosage: 1 GRAM, 3 TIMES A DAY
     Route: 042
  13. FOLATE SODIUM [Suspect]
     Active Substance: FOLATE SODIUM
     Indication: Product used for unknown indication
     Route: 065
  14. CYTARABINE [Suspect]
     Active Substance: CYTARABINE
     Indication: Product used for unknown indication
     Route: 065
     Dates: start: 200504
  15. IDARUBICIN [Suspect]
     Active Substance: IDARUBICIN
     Indication: Product used for unknown indication
     Route: 065
     Dates: start: 200504
  16. ETOPOSIDE [Suspect]
     Active Substance: ETOPOSIDE
     Indication: Product used for unknown indication
     Route: 065
     Dates: start: 200512
  17. PREDNISOLONE [Suspect]
     Active Substance: PREDNISOLONE
     Indication: Acute graft versus host disease
     Dosage: 30 MILLIGRAM, ONCE A DAY
     Route: 065
  18. PREDNISOLONE [Suspect]
     Active Substance: PREDNISOLONE
     Dosage: 30 MILLIGRAM, EVERY OTHER DAY
     Route: 065
  19. MIANSERIN [Concomitant]
     Active Substance: MIANSERIN
     Indication: Product used for unknown indication
     Route: 065
  20. COTRIMOXAZOLE [Concomitant]
     Active Substance: SULFAMETHOXAZOLE\TRIMETHOPRIM
     Indication: Product used for unknown indication
     Route: 065
  21. MYCOPHENOLATE MOFETIL [Concomitant]
     Active Substance: MYCOPHENOLATE MOFETIL
     Indication: Graft versus host disease
     Dosage: 2 GRAM, ONCE A DAY
     Route: 065
  22. MYCOPHENOLATE MOFETIL [Concomitant]
     Active Substance: MYCOPHENOLATE MOFETIL
     Indication: Glomerulonephritis minimal lesion
     Dosage: 1 GRAM, TWO TIMES A DAY
  23. ENALAPRIL [Concomitant]
     Active Substance: ENALAPRIL
     Indication: Product used for unknown indication
     Dosage: 20 MILLIGRAM, ONCE A DAY
     Route: 065
  24. MAGNESIUM [Concomitant]
     Active Substance: MAGNESIUM
     Indication: Product used for unknown indication
     Route: 065

REACTIONS (43)
  - Dry mouth [Recovered/Resolved]
  - Poikiloderma [Recovered/Resolved]
  - Acute graft versus host disease [Recovered/Resolved]
  - Nephrotic syndrome [Recovered/Resolved]
  - Anti-platelet antibody positive [Recovered/Resolved]
  - Embolism venous [Recovered/Resolved]
  - Blood lactate dehydrogenase increased [Recovered/Resolved]
  - Skin hypertrophy [Recovered/Resolved]
  - Lichenoid keratosis [Recovered/Resolved]
  - Meningioma [Recovered/Resolved]
  - Adenomatous polyposis coli [Unknown]
  - Withdrawal syndrome [Unknown]
  - Gamma-glutamyltransferase increased [Recovered/Resolved]
  - Reticulocytosis [Recovered/Resolved]
  - Anaemia [Recovered/Resolved]
  - Coombs direct test positive [Recovered/Resolved]
  - Proteinuria [Recovered/Resolved]
  - Haptoglobin decreased [Recovered/Resolved]
  - Urine analysis abnormal [Recovered/Resolved]
  - Diplopia [Recovered/Resolved]
  - Cytomegalovirus infection [Recovered/Resolved]
  - Hypercholesterolaemia [Recovered/Resolved]
  - Alanine aminotransferase increased [Recovered/Resolved]
  - Eye pain [Unknown]
  - Generalised oedema [Recovered/Resolved]
  - Blood creatinine increased [Recovered/Resolved]
  - Deep vein thrombosis [Unknown]
  - Rash maculo-papular [Recovered/Resolved]
  - Blood alkaline phosphatase increased [Recovered/Resolved]
  - Blood bilirubin increased [Recovered/Resolved]
  - Blood bilirubin unconjugated increased [Recovered/Resolved]
  - 5^nucleotidase increased [Recovered/Resolved]
  - Dry eye [Recovered/Resolved]
  - Aspartate aminotransferase increased [Recovered/Resolved]
  - Hypoalbuminaemia [Recovered/Resolved]
  - Acute graft versus host disease in skin [Recovered/Resolved]
  - Chronic graft versus host disease [Recovered/Resolved]
  - Thrombocytopenia [Recovered/Resolved]
  - Acute kidney injury [Recovered/Resolved]
  - Blood urea increased [Recovered/Resolved]
  - Renal tubular necrosis [Recovered/Resolved]
  - Venous thrombosis [Recovered/Resolved]
  - Hepatic enzyme increased [Unknown]
